FAERS Safety Report 6995880-X (Version None)
Quarter: 2010Q3

REPORT INFORMATION
  Report Type: 
  Country: None (occurrence: None)
  Receive Date: 20100918
  Receipt Date: 20081114
  Transmission Date: 20110219
  Serious: No
  Sender: FDA-Public Use
  Company Number: US-WYE-H06854908

PATIENT
  Sex: Female

DRUGS (3)
  1. EFFEXOR XR [Suspect]
     Indication: DEPRESSION
     Route: 048
     Dates: start: 20080401, end: 20080901
  2. EFFEXOR XR [Interacting]
     Dosage: UNKNOWN
     Dates: start: 20081001
  3. ETHANOL [Interacting]

REACTIONS (5)
  - ALCOHOL INTERACTION [None]
  - ALCOHOLISM [None]
  - DRUG WITHDRAWAL SYNDROME [None]
  - FEMALE SEXUAL DYSFUNCTION [None]
  - PERSONALITY CHANGE [None]
